FAERS Safety Report 4622245-8 (Version None)
Quarter: 2005Q1

REPORT INFORMATION
  Report Type: 
  Country: None (occurrence: None)
  Receive Date: 20050323
  Receipt Date: 20050323
  Transmission Date: 20050727
  Serious: Yes (Hospitalization)
  Sender: FDA-Public Use
  Company Number: None

PATIENT
  Sex: Female

DRUGS (1)
  1. OVIDREL [Suspect]
     Indication: OOCYTE DONATION
     Dosage: SUBCUTANEO
     Route: 058
     Dates: start: 20040608, end: 20040608

REACTIONS (1)
  - OVARIAN HYPERSTIMULATION SYNDROME [None]
